FAERS Safety Report 14084869 (Version 2)
Quarter: 2018Q2

REPORT INFORMATION
  Report Type: Report from Study
  Country: None (occurrence: FR)
  Receive Date: 20171013
  Receipt Date: 20180430
  Transmission Date: 20180711
  Serious: Yes (Other)
  Sender: FDA-Public Use
  Company Number: FR-ABBVIE-17K-056-2120869-00

PATIENT
  Age: 68 Year
  Sex: Male

DRUGS (1)
  1. DUODOPA [Suspect]
     Active Substance: CARBIDOPA\LEVODOPA
     Indication: PARKINSON^S DISEASE
     Route: 050
     Dates: start: 201609, end: 2017

REACTIONS (5)
  - Demyelination [Unknown]
  - Device dislocation [Unknown]
  - Cachexia [Unknown]
  - Malnutrition [Unknown]
  - Myopathy [Unknown]

NARRATIVE: CASE EVENT DATE: 2017
